FAERS Safety Report 10041641 (Version 1)
Quarter: 2014Q1

REPORT INFORMATION
  Report Type: Spontaneous
  Country: FR (occurrence: FR)
  Receive Date: 20140327
  Receipt Date: 20140327
  Transmission Date: 20141002
  Serious: Yes (Other)
  Sender: FDA-Public Use
  Company Number: FR-PFIZER INC-2014083183

PATIENT
  Age: 24 Year
  Sex: Male

DRUGS (2)
  1. XANAX [Suspect]
     Dosage: 0.25 MG, UNK
     Dates: start: 2013
  2. STILNOX [Suspect]
     Dosage: 10 MG, UNK
     Dates: start: 2013

REACTIONS (4)
  - Suicidal ideation [Recovering/Resolving]
  - Negative thoughts [Recovering/Resolving]
  - Insomnia [Recovering/Resolving]
  - Disorientation [Recovering/Resolving]
